FAERS Safety Report 7875030-8 (Version None)
Quarter: 2011Q4

REPORT INFORMATION
  Report Type: 
  Country: None (occurrence: None)
  Receive Date: 20111031
  Receipt Date: 20111025
  Transmission Date: 20120403
  Serious: Yes (Other)
  Sender: FDA-Public Use
  Company Number: US-AMGEN-USASP2011055365

PATIENT
  Age: 61 Year
  Sex: Female

DRUGS (2)
  1. ENBREL [Suspect]
     Indication: RHEUMATOID ARTHRITIS
     Dosage: 50 MG, QWK
     Dates: start: 19991001, end: 20111014
  2. ENBREL [Suspect]
     Indication: SJOGREN'S SYNDROME

REACTIONS (6)
  - DYSPNOEA [None]
  - CHOLELITHIASIS [None]
  - ANAESTHETIC COMPLICATION [None]
  - DIZZINESS [None]
  - PARANASAL SINUS HYPERSECRETION [None]
  - VOMITING [None]
